FAERS Safety Report 12356570 (Version 2)
Quarter: 2016Q3

REPORT INFORMATION
  Report Type: Spontaneous
  Country: BR (occurrence: BR)
  Receive Date: 20160511
  Receipt Date: 20160802
  Transmission Date: 20161109
  Serious: Yes (Other)
  Sender: FDA-Public Use
  Company Number: BR-ABBVIE-16P-020-1626075-00

PATIENT
  Age: 15 Year
  Sex: Male
  Weight: 78 kg

DRUGS (1)
  1. KLARICID UD [Suspect]
     Active Substance: CLARITHROMYCIN
     Indication: SINUSITIS
     Route: 065
     Dates: start: 201604, end: 201604

REACTIONS (7)
  - Cough [Recovering/Resolving]
  - Wheezing [Not Recovered/Not Resolved]
  - Pruritus [Recovering/Resolving]
  - Dyspnoea [Recovering/Resolving]
  - Drug administered to patient of inappropriate age [Unknown]
  - Lip swelling [Recovered/Resolved]
  - Rash erythematous [Recovering/Resolving]

NARRATIVE: CASE EVENT DATE: 201604
